FAERS Safety Report 7492737-5 (Version None)
Quarter: 2011Q2

REPORT INFORMATION
  Report Type: 
  Country: None (occurrence: None)
  Receive Date: 20110519
  Receipt Date: 20110510
  Transmission Date: 20111010
  Serious: Yes (Hospitalization)
  Sender: FDA-Public Use
  Company Number: US-RB-020357-11

PATIENT
  Age: 37 Year
  Sex: Male

DRUGS (1)
  1. SUBOXONE [Suspect]
     Indication: DRUG DEPENDENCE
     Dosage: SUBLINGUAL FILM
     Route: 060
     Dates: start: 20110101

REACTIONS (4)
  - NAUSEA [None]
  - NEPHROLITHIASIS [None]
  - DYSPHAGIA [None]
  - THERAPEUTIC RESPONSE UNEXPECTED [None]
